FAERS Safety Report 12739671 (Version 1)
Quarter: 2016Q3

REPORT INFORMATION
  Report Type: Spontaneous
  Country: TW (occurrence: TW)
  Receive Date: 20160913
  Receipt Date: 20160913
  Transmission Date: 20161109
  Serious: Yes (Hospitalization)
  Sender: FDA-Public Use
  Company Number: TW-SA-2016SA164261

PATIENT
  Age: 27 Year
  Sex: Female
  Weight: 47 kg

DRUGS (20)
  1. MYOZYME [Suspect]
     Active Substance: ALGLUCOSIDASE ALFA
     Indication: GLYCOGEN STORAGE DISEASE TYPE II
     Route: 042
     Dates: start: 20160318
  2. ACETAMINOPHEN. [Concomitant]
     Active Substance: ACETAMINOPHEN
     Indication: WOUND COMPLICATION
     Route: 048
     Dates: start: 20160819, end: 20160819
  3. ACETAMINOPHEN. [Concomitant]
     Active Substance: ACETAMINOPHEN
     Indication: WOUND COMPLICATION
     Route: 048
     Dates: start: 20160820, end: 20160822
  4. DIMETHICONE. [Concomitant]
     Active Substance: DIMETHICONE
     Indication: ABDOMINAL DISTENSION
     Dosage: STAT
     Route: 048
     Dates: start: 20160728, end: 20160728
  5. BETAMETHASONE SODIUM PHOSPHATE [Concomitant]
     Active Substance: BETAMETHASONE SODIUM PHOSPHATE
     Indication: PROPHYLAXIS
     Route: 030
     Dates: start: 20160530, end: 20160531
  6. NAPROXEN. [Concomitant]
     Active Substance: NAPROXEN
     Indication: WOUND COMPLICATION
     Route: 048
     Dates: start: 20160822, end: 20160825
  7. ERGOMETRINE MALEATE [Concomitant]
     Indication: POSTPARTUM HAEMORRHAGE
     Route: 048
     Dates: start: 20160818, end: 20160821
  8. MYOZYME [Suspect]
     Active Substance: ALGLUCOSIDASE ALFA
     Indication: GLYCOGEN STORAGE DISEASE TYPE II
     Route: 042
     Dates: start: 20121031, end: 20160318
  9. ACETAMINOPHEN. [Concomitant]
     Active Substance: ACETAMINOPHEN
     Indication: WOUND COMPLICATION
     Route: 048
     Dates: start: 20160819, end: 20160819
  10. DEXTROSE. [Concomitant]
     Active Substance: DEXTROSE
     Indication: GLUCOSE TOLERANCE TEST
     Dosage: 50%/AMP/STAT
     Route: 042
     Dates: start: 20160610, end: 20160610
  11. LACTULOSE. [Concomitant]
     Active Substance: LACTULOSE
     Indication: CONSTIPATION
     Route: 048
     Dates: start: 20160515, end: 20160819
  12. MAGNESIUM OXIDE. [Concomitant]
     Active Substance: MAGNESIUM OXIDE
     Indication: CONSTIPATION
     Route: 048
     Dates: start: 20160605, end: 20160819
  13. CEPHALEXIN. [Concomitant]
     Active Substance: CEPHALEXIN
     Indication: PROPHYLAXIS
     Route: 048
     Dates: start: 20160819, end: 20160819
  14. CEFAZOLIN [Concomitant]
     Active Substance: CEFAZOLIN
     Indication: PROPHYLAXIS
     Route: 042
     Dates: start: 20160818, end: 20160819
  15. ACETAMINOPHEN. [Concomitant]
     Active Substance: ACETAMINOPHEN
     Indication: WOUND COMPLICATION
     Route: 048
     Dates: start: 20160819, end: 20160819
  16. MAGNESIUM OXIDE. [Concomitant]
     Active Substance: MAGNESIUM OXIDE
     Indication: CONSTIPATION
     Route: 048
     Dates: start: 20160514, end: 20160605
  17. LACTULOSE. [Concomitant]
     Active Substance: LACTULOSE
     Indication: CONSTIPATION
     Route: 048
     Dates: start: 20160515, end: 20160819
  18. DIMETHICONE. [Concomitant]
     Active Substance: DIMETHICONE
     Indication: ABDOMINAL DISTENSION
     Route: 048
     Dates: start: 20160514, end: 20160819
  19. OXYTOCIN. [Concomitant]
     Active Substance: OXYTOCIN
     Indication: LABOUR INDUCTION
     Route: 042
     Dates: start: 20160818, end: 20160819
  20. METHYLERGOMETRINE MALEATE [Concomitant]
     Active Substance: METHYLERGONOVINE MALEATE
     Indication: POSTPARTUM HAEMORRHAGE
     Route: 030
     Dates: start: 20160818, end: 20160819

REACTIONS (5)
  - Preterm premature rupture of membranes [Unknown]
  - Abdominal pain lower [Recovered/Resolved]
  - Pre-eclampsia [Unknown]
  - Dysuria [Recovered/Resolved]
  - Premature labour [Recovered/Resolved]

NARRATIVE: CASE EVENT DATE: 2016
